FAERS Safety Report 25261476 (Version 2)
Quarter: 2025Q2

REPORT INFORMATION
  Report Type: Report from Study
  Country: US (occurrence: US)
  Receive Date: 20250501
  Receipt Date: 20250514
  Transmission Date: 20250716
  Serious: No
  Sender: ABBVIE
  Company Number: US-ABBVIE-6261351

PATIENT
  Sex: Male

DRUGS (1)
  1. HUMIRA [Suspect]
     Active Substance: ADALIMUMAB
     Indication: Rheumatoid arthritis
     Route: 058

REACTIONS (3)
  - Device leakage [Unknown]
  - Injection site haemorrhage [Unknown]
  - Hernia [Unknown]
